FAERS Safety Report 4463255-3 (Version None)
Quarter: 2004Q3

REPORT INFORMATION
  Report Type: 
  Country: None (occurrence: None)
  Receive Date: 20040930
  Receipt Date: 20040920
  Transmission Date: 20050211
  Serious: Yes (Hospitalization)
  Sender: FDA-Public Use
  Company Number: FR-GLAXOSMITHKLINE-B0345820A

PATIENT
  Age: 73 Year
  Sex: Female
  Weight: 79 kg

DRUGS (5)
  1. ZOPHREN [Suspect]
     Dosage: 8MG PER DAY
     Route: 042
     Dates: start: 20040517, end: 20040518
  2. LEDERFOLINE [Suspect]
     Dosage: 325MG PER DAY
     Route: 042
     Dates: start: 20040517, end: 20040517
  3. SOLU-MEDROL [Suspect]
     Dosage: 80MG PER DAY
     Route: 042
     Dates: start: 20040517, end: 20040518
  4. ELOXATIN [Suspect]
     Dosage: 120MG PER DAY
     Route: 042
     Dates: start: 20040517, end: 20040517
  5. FLUOROURACIL [Suspect]
     Dosage: 750MG PER DAY
     Route: 042
     Dates: start: 20040517, end: 20040519

REACTIONS (3)
  - CHILLS [None]
  - MALAISE [None]
  - PYREXIA [None]
